FAERS Safety Report 9148432 (Version 1)
Quarter: 2013Q1

REPORT INFORMATION
  Report Type: Spontaneous
  Country: US (occurrence: None)
  Receive Date: 20130228
  Receipt Date: 20130228
  Transmission Date: 20140127
  Serious: Yes (Hospitalization)
  Sender: FDA-Public Use
  Company Number: None

PATIENT
  Age: 45 Year
  Sex: Male
  Weight: 81.2 kg

DRUGS (1)
  1. FENTANYL 50 MCG/HR UNKNOWN [Suspect]

REACTIONS (4)
  - Drug effect decreased [None]
  - Incorrect route of drug administration [None]
  - Alcohol use [None]
  - Unresponsive to stimuli [None]
